FAERS Safety Report 8934545 (Version 1)
Quarter: 2012Q4

REPORT INFORMATION
  Report Type: 
  Country: US (occurrence: US)
  Receive Date: 20121129
  Receipt Date: 20121129
  Transmission Date: 20130627
  Serious: No
  Sender: FDA-Public Use
  Company Number: US-GLAXOSMITHKLINE-A0995429A

PATIENT
  Age: 84 Year
  Sex: Male

DRUGS (1)
  1. FLOVENT [Suspect]
     Indication: COUGH
     Route: 055
     Dates: start: 201206

REACTIONS (2)
  - Nocturia [Not Recovered/Not Resolved]
  - Pollakiuria [Not Recovered/Not Resolved]
